FAERS Safety Report 16961431 (Version 1)
Quarter: 2019Q4

REPORT INFORMATION
  Report Type: Spontaneous
  Country: US (occurrence: US)
  Receive Date: 20190906
  Receipt Date: 20190906
  Transmission Date: 20200122
  Serious: Yes (Hospitalization)
  Sender: FDA-Public Use
  Company Number: None

PATIENT
  Sex: Female
  Weight: 45.36 kg

DRUGS (13)
  1. PALPERDIONE [Concomitant]
  2. BENLYSTA IV [Concomitant]
  3. PALIPERIDONE. [Concomitant]
     Active Substance: PALIPERIDONE
  4. HYDROCHLORDINE [Concomitant]
  5. METHYLPREDNISOLONE. [Concomitant]
     Active Substance: METHYLPREDNISOLONE
  6. FLUOXETINE [Concomitant]
     Active Substance: FLUOXETINE HYDROCHLORIDE
  7. BENLYSTA [Suspect]
     Active Substance: BELIMUMAB
     Indication: SYSTEMIC LUPUS ERYTHEMATOSUS
     Dosage: ?          QUANTITY:TIN CASE?9 NOT SEND;?
     Dates: start: 2015, end: 20190903
  8. FLUOXETINE [Concomitant]
     Active Substance: FLUOXETINE HYDROCHLORIDE
  9. VITAMIN D [Concomitant]
     Active Substance: VITAMIN D NOS
  10. VITAMIN D [Concomitant]
     Active Substance: VITAMIN D NOS
  11. HYDROXYCHLOROQUINE [Concomitant]
     Active Substance: HYDROXYCHLOROQUINE
  12. METHYLPREDNISOLONE. [Concomitant]
     Active Substance: METHYLPREDNISOLONE
  13. BENYSTAL [Concomitant]

REACTIONS (10)
  - Anxiety [None]
  - Suicidal ideation [None]
  - Chest pain [None]
  - Mental disorder [None]
  - Obsessive-compulsive disorder [None]
  - Sleep disorder [None]
  - Somatic symptom disorder [None]
  - Mood altered [None]
  - Depression [None]
  - Hallucination, auditory [None]
